FAERS Safety Report 23310222 (Version 1)
Quarter: 2023Q4

REPORT INFORMATION
  Report Type: Spontaneous
  Country: US (occurrence: None)
  Receive Date: 20231218
  Receipt Date: 20231218
  Transmission Date: 20240110
  Serious: No
  Sender: FDA-Public Use
  Company Number: 2023A280943

PATIENT

DRUGS (1)
  1. BREZTRI [Suspect]
     Active Substance: BUDESONIDE\FORMOTEROL\GLYCOPYRROLATE
     Indication: Chronic obstructive pulmonary disease
     Dosage: AS REQUIRED
     Route: 055
     Dates: start: 20230501, end: 20231205

REACTIONS (1)
  - Eye disorder [Recovered/Resolved]

NARRATIVE: CASE EVENT DATE: 20231115
